FAERS Safety Report 9644712 (Version 1)
Quarter: 2013Q4

REPORT INFORMATION
  Report Type: Spontaneous
  Country: US (occurrence: None)
  Receive Date: 20131022
  Receipt Date: 20131022
  Transmission Date: 20140711
  Serious: Yes (Other)
  Sender: FDA-Public Use
  Company Number: None

PATIENT
  Age: 5 Year
  Sex: Male
  Weight: 21.32 kg

DRUGS (2)
  1. QVAR [Suspect]
     Indication: ASTHMA
     Dosage: 2 PUFFS TWICE DAILY
     Route: 055
     Dates: start: 20130603, end: 20131022
  2. BUDESONIDE [Suspect]
     Indication: ASTHMA
     Dosage: 1 VIAL ONCE DAILY
     Route: 055

REACTIONS (2)
  - Incontinence [None]
  - Asthma [None]
